FAERS Safety Report 9158082 (Version 1)
Quarter: 2013Q1

REPORT INFORMATION
  Report Type: Spontaneous
  Country: US (occurrence: None)
  Receive Date: 20130219
  Receipt Date: 20130219
  Transmission Date: 20140127
  Serious: Yes (Other)
  Sender: FDA-Public Use
  Company Number: 2013P1001954

PATIENT
  Age: 66 Year
  Sex: Male
  Weight: 84.37 kg

DRUGS (2)
  1. OXCARBAZEPINE [Suspect]
     Indication: CONVULSION
     Route: 048
  2. VITAMINS [Concomitant]

REACTIONS (6)
  - Drug ineffective [None]
  - Convulsion [None]
  - Lip injury [None]
  - Headache [None]
  - Blood sodium decreased [None]
  - White blood cell count increased [None]
